FAERS Safety Report 20560247 (Version 1)
Quarter: 2022Q1

REPORT INFORMATION
  Report Type: Spontaneous
  Country: US (occurrence: None)
  Receive Date: 20220304
  Receipt Date: 20220304
  Transmission Date: 20220423
  Serious: Yes (Hospitalization)
  Sender: FDA-Public Use
  Company Number: None

PATIENT
  Age: 13 Year
  Sex: Male
  Weight: 40 kg

DRUGS (3)
  1. PEGASPARGASE [Suspect]
     Active Substance: PEGASPARGASE
     Indication: Leukaemia
     Dosage: OTHER FREQUENCY : ONCE;?
     Route: 042
     Dates: start: 20220103, end: 20220103
  2. PEGASPARGASE [Suspect]
     Active Substance: PEGASPARGASE
     Indication: Leukaemia
     Dosage: OTHER FREQUENCY : ONCE;?
     Route: 042
     Dates: start: 20211115, end: 20211115
  3. Mercaptopurine 600 mg PO per week [Concomitant]
     Dates: start: 20211220, end: 20220102

REACTIONS (18)
  - Pancreatitis [None]
  - Hepatic steatosis [None]
  - Respiratory rate increased [None]
  - Thrombocytosis [None]
  - Lymphopenia [None]
  - Carbon dioxide decreased [None]
  - Duodenitis [None]
  - Enteritis [None]
  - Computerised tomogram abdomen abnormal [None]
  - Pancreatic phlegmon [None]
  - Pancreatitis necrotising [None]
  - Urine output decreased [None]
  - Hypophagia [None]
  - Hypervolaemia [None]
  - Hypoxia [None]
  - Anaemia [None]
  - Infrequent bowel movements [None]
  - Therapy interrupted [None]

NARRATIVE: CASE EVENT DATE: 20220120
